FAERS Safety Report 7296436-4 (Version None)
Quarter: 2011Q1

REPORT INFORMATION
  Report Type: 
  Country: None (occurrence: None)
  Receive Date: 20110216
  Receipt Date: 20110207
  Transmission Date: 20110831
  Serious: Yes (Other)
  Sender: FDA-Public Use
  Company Number: US-ASTRAZENECA-2011SE07171

PATIENT
  Age: 52 Year
  Sex: Female

DRUGS (1)
  1. SYMBICORT [Suspect]
     Route: 055

REACTIONS (6)
  - ASTHMA [None]
  - APHAGIA [None]
  - GAIT DISTURBANCE [None]
  - DYSPNOEA [None]
  - FEMALE REPRODUCTIVE NEOPLASM [None]
  - DRUG DOSE OMISSION [None]
